FAERS Safety Report 8812743 (Version 2)
Quarter: 2013Q1

REPORT INFORMATION
  Report Type: Spontaneous
  Country: US (occurrence: US)
  Receive Date: 20120927
  Receipt Date: 20130103
  Transmission Date: 20140127
  Serious: Yes (Hospitalization, Other)
  Sender: FDA-Public Use
  Company Number: US-INCYTE CORPORATION-2012IN001850

PATIENT
  Sex: Female
  Weight: 75.74 kg

DRUGS (4)
  1. JAKAFI [Suspect]
     Indication: MYELOFIBROSIS
     Dosage: 10 MG, BID
     Dates: start: 201207, end: 2012
  2. JAKAFI [Suspect]
     Dosage: 10 MG, BID
     Dates: start: 2012
  3. OMEPRAZOLE [Concomitant]
  4. DEXAMETHASONE [Concomitant]

REACTIONS (1)
  - Gastrointestinal haemorrhage [Recovered/Resolved]
